FAERS Safety Report 10221269 (Version 3)
Quarter: 2014Q4

REPORT INFORMATION
  Report Type: Spontaneous
  Country: US (occurrence: None)
  Receive Date: 20140604
  Receipt Date: 20141027
  Transmission Date: 20150528
  Serious: Yes (Death)
  Sender: FDA-Public Use
  Company Number: 1713747-2014-99978

PATIENT
  Age: 81 Year
  Sex: Male

DRUGS (6)
  1. 0.9% SODIUM CHLORIDE INJECTION [Suspect]
     Active Substance: SODIUM CHLORIDE
     Indication: CHRONIC KIDNEY DISEASE
     Dosage: HEMODIALYSIS
     Dates: start: 20120125
  2. 2008K HEMODIALYSIS MACHINE [Concomitant]
  3. NATURALYTE [Concomitant]
     Active Substance: ACETIC ACID\SODIUM ACETATE
  4. GRANUFLO [Concomitant]
     Active Substance: ACETIC ACID\SODIUM ACETATE
  5. FRESNIUS OPTIFLUX DIALYZER 160NRE [Concomitant]
  6. FRESNIUS COMBISET [Concomitant]

REACTIONS (6)
  - Respiratory failure [None]
  - Poor venous access [None]
  - Pulse absent [None]
  - Hypotension [None]
  - Slow response to stimuli [None]
  - Myocardial infarction [None]

NARRATIVE: CASE EVENT DATE: 20120125
